FAERS Safety Report 7133200-0 (Version None)
Quarter: 2010Q4

REPORT INFORMATION
  Report Type: 
  Country: None (occurrence: None)
  Receive Date: 20101202
  Receipt Date: 20101123
  Transmission Date: 20110411
  Serious: Yes (Other)
  Sender: FDA-Public Use
  Company Number: US-PFIZER INC-HQWYE803515OCT04

PATIENT
  Sex: Female
  Weight: 74 kg

DRUGS (4)
  1. PREMPRO [Suspect]
     Indication: HORMONE REPLACEMENT THERAPY
     Dosage: 0.625-2.5 MG
     Route: 048
     Dates: start: 19960101, end: 20000101
  2. PREMARIN [Suspect]
     Dosage: UNK
  3. PROVERA [Suspect]
     Dosage: UNK
  4. PREMPHASE (PREMARIN;CYCRIN 14/14) [Suspect]
     Indication: HORMONE REPLACEMENT THERAPY
     Dosage: UNK
     Dates: start: 19990601, end: 19990801

REACTIONS (1)
  - BREAST CANCER FEMALE [None]
